FAERS Safety Report 8811119 (Version 2)
Quarter: 2012Q4

REPORT INFORMATION
  Report Type: 
  Country: US (occurrence: US)
  Receive Date: 20120927
  Receipt Date: 20121008
  Transmission Date: 20130627
  Serious: Yes (Hospitalization, Disabling, Other)
  Sender: FDA-Public Use
  Company Number: US-009507513-1106USA00671

PATIENT

DRUGS (22)
  1. FOSAMAX [Suspect]
     Indication: OSTEOPOROSIS POSTMENOPAUSAL
     Dosage: 70 mg, UNK
     Route: 048
     Dates: start: 2002, end: 201003
  2. FOSAMAX [Suspect]
     Indication: OSTEOPENIA
     Dosage: 70 mg, QW
  3. FOSAMAX [Suspect]
     Indication: OSTEOPOROSIS POSTMENOPAUSAL
     Dosage: 70 mg, UNK
     Route: 048
     Dates: start: 2002, end: 2010
  4. FOSAMAX [Suspect]
     Indication: OSTEOPENIA
  5. FOSAMAX PLUS D [Suspect]
     Indication: OSTEOPENIA
     Dosage: 70 mg, UNK
     Route: 048
     Dates: start: 20080421, end: 20080512
  6. BUPROPION HYDROCHLORIDE [Concomitant]
     Dosage: 200 mg, qd
     Route: 048
  7. SERTRALINE HYDROCHLORIDE [Concomitant]
     Dosage: 150 mg, qd
  8. LIORAM [Concomitant]
     Dosage: nightly
     Route: 048
  9. COLACE [Concomitant]
     Dosage: BID
     Route: 048
  10. PANTOPRAZOLE [Concomitant]
     Dosage: 40 mg, qd
     Route: 048
  11. ENOXAPARIN SODIUM [Concomitant]
     Dosage: 40 mg, qd
     Route: 058
  12. LEVOTIROXINA S.O [Concomitant]
     Dosage: 125 ?g, qd
     Route: 048
  13. SYNTHROID [Concomitant]
     Dosage: 0.125 mg, qd
  14. ESTROGENS (UNSPECIFIED) [Concomitant]
     Route: 067
  15. ESTRACE [Concomitant]
  16. PRILOSEC [Concomitant]
     Route: 048
  17. CALCIUM (UNSPECIFIED) [Concomitant]
     Dosage: 2 DF, qd
  18. VITAMIN D (UNSPECIFIED) [Concomitant]
     Dosage: 2 DF, qd
  19. CHOLECALCIFEROL [Concomitant]
     Dosage: 2000 IU, qd
  20. CALCIUM (UNSPECIFIED) (+) VITAMIN D (UNSPECIFIED) [Concomitant]
  21. CITRACAL + D [Concomitant]
  22. ESTRADIOL [Concomitant]

REACTIONS (106)
  - Femoral neck fracture [Recovered/Resolved]
  - Hip arthroplasty [Unknown]
  - Loss of consciousness [Unknown]
  - Osteonecrosis [Unknown]
  - Rib fracture [Recovering/Resolving]
  - Suicidal ideation [Recovered/Resolved]
  - Patella fracture [Recovered/Resolved]
  - Humerus fracture [Recovering/Resolving]
  - Contusion [Unknown]
  - Plasma cell myeloma [Unknown]
  - Disability [Unknown]
  - Fibrosis [Unknown]
  - Fracture [Unknown]
  - Duodenitis [Not Recovered/Not Resolved]
  - Anxiety [Unknown]
  - Low turnover osteopathy [Unknown]
  - Depression [Unknown]
  - Attention deficit/hyperactivity disorder [Unknown]
  - Lymphadenopathy [Unknown]
  - Colitis microscopic [Unknown]
  - Fall [Unknown]
  - Animal bite [Unknown]
  - Abdominal hernia [Unknown]
  - Umbilical hernia [Unknown]
  - Urinary incontinence [Not Recovered/Not Resolved]
  - Musculoskeletal disorder [Unknown]
  - Arthropathy [Unknown]
  - Bone density decreased [Unknown]
  - Cystitis [Unknown]
  - Osteoarthritis [Unknown]
  - Activities of daily living impaired [Unknown]
  - Renal disorder [Unknown]
  - Thyroid disorder [Unknown]
  - Appendix disorder [Unknown]
  - Tonsillar disorder [Unknown]
  - Adenoidal disorder [Unknown]
  - Arthropathy [Unknown]
  - Musculoskeletal disorder [Unknown]
  - Night sweats [Unknown]
  - Lip injury [Recovering/Resolving]
  - Foot fracture [Unknown]
  - Ligament sprain [Unknown]
  - Fall [Unknown]
  - Tooth loss [Unknown]
  - Peripheral sensory neuropathy [Unknown]
  - Tendon disorder [Unknown]
  - Rotator cuff syndrome [Unknown]
  - Ligament sprain [Unknown]
  - Foot fracture [Unknown]
  - Exostosis [Unknown]
  - Procedural vomiting [Recovered/Resolved]
  - Hand fracture [Recovered/Resolved]
  - Finger deformity [Unknown]
  - Body height decreased [Unknown]
  - Goitre [Recovered/Resolved]
  - Psychomotor hyperactivity [Unknown]
  - Bone metabolism disorder [Unknown]
  - Hypercorticoidism [Unknown]
  - Resorption bone increased [Unknown]
  - Fatigue [Unknown]
  - Osteopenia [Unknown]
  - Blood magnesium decreased [Recovered/Resolved]
  - Stress fracture [Unknown]
  - Blood cortisol decreased [Unknown]
  - Skin ulcer [Unknown]
  - Spinal pain [Unknown]
  - Breast discomfort [Unknown]
  - Animal bite [Unknown]
  - Treatment noncompliance [Unknown]
  - Fibula fracture [Unknown]
  - Ankle fracture [Recovering/Resolving]
  - Bursitis [Recovering/Resolving]
  - Ligament sprain [Unknown]
  - Spinal osteoarthritis [Unknown]
  - Spondylolisthesis [Unknown]
  - Intervertebral disc protrusion [Unknown]
  - Arthropathy [Unknown]
  - Sciatica [Unknown]
  - Intervertebral disc degeneration [Unknown]
  - Ligament sprain [Unknown]
  - Dermal cyst [Unknown]
  - Nipple disorder [Unknown]
  - Glossodynia [Unknown]
  - Tooth fracture [Unknown]
  - Scar [Unknown]
  - Fall [Unknown]
  - Sensitivity of teeth [Unknown]
  - Joint crepitation [Unknown]
  - Sensitivity of teeth [Unknown]
  - Muscular weakness [Unknown]
  - Gait disturbance [Unknown]
  - Endodontic procedure [Unknown]
  - Insomnia [Unknown]
  - Pyrexia [Unknown]
  - Blood pressure decreased [Unknown]
  - Pain in extremity [Unknown]
  - Headache [Unknown]
  - Gastrooesophageal reflux disease [Unknown]
  - Oedema peripheral [Unknown]
  - Musculoskeletal discomfort [Not Recovered/Not Resolved]
  - Muscle spasms [Unknown]
  - Back pain [Unknown]
  - Drug ineffective [Unknown]
  - Muscle spasms [Unknown]
  - Abdominal discomfort [Unknown]
  - Constipation [Unknown]
